FAERS Safety Report 19667164 (Version 1)
Quarter: 2021Q3

REPORT INFORMATION
  Report Type: Spontaneous
  Country: US (occurrence: US)
  Receive Date: 20210806
  Receipt Date: 20210806
  Transmission Date: 20211014
  Serious: No
  Sender: FDA-Public Use
  Company Number: US-ACCORD-185675

PATIENT
  Sex: Female

DRUGS (2)
  1. DOXAZOSIN ACCORD [Suspect]
     Active Substance: DOXAZOSIN MESYLATE
     Indication: BLOOD PRESSURE MEASUREMENT
     Dosage: DAILY
     Route: 048
     Dates: start: 20200613
  2. CLONIDINE. [Concomitant]
     Active Substance: CLONIDINE
     Dosage: STRENGTH 0.1 MG

REACTIONS (1)
  - Drug ineffective [Unknown]
